FAERS Safety Report 6588204-3 (Version None)
Quarter: 2010Q1

REPORT INFORMATION
  Report Type: 
  Country: None (occurrence: None)
  Receive Date: 20100218
  Receipt Date: 20091216
  Transmission Date: 20100710
  Serious: No
  Sender: FDA-Public Use
  Company Number: US-BAYER-200943297NA

PATIENT
  Sex: Female

DRUGS (1)
  1. MIRENA [Suspect]
     Indication: DRUG USE FOR UNKNOWN INDICATION
     Dosage: CONTINUOUS DELIVERY
     Route: 015
     Dates: start: 20091202

REACTIONS (3)
  - ABDOMINAL PAIN [None]
  - POST PROCEDURAL HAEMORRHAGE [None]
  - VAGINAL HAEMORRHAGE [None]
